FAERS Safety Report 18755700 (Version 1)
Quarter: 2021Q1

REPORT INFORMATION
  Report Type: Report from Study
  Country: FR (occurrence: FR)
  Receive Date: 20210119
  Receipt Date: 20210119
  Transmission Date: 20210419
  Serious: Yes (Other)
  Sender: FDA-Public Use
  Company Number: FR-JNJFOC-20210107609

PATIENT

DRUGS (6)
  1. DEXAMETHASONE. [Concomitant]
     Active Substance: DEXAMETHASONE
     Indication: PREMEDICATION
     Route: 065
  2. VALACYCLOVIR [Concomitant]
     Active Substance: VALACYCLOVIR HYDROCHLORIDE
     Indication: PROPHYLAXIS
  3. AMOXICILLIN. [Concomitant]
     Active Substance: AMOXICILLIN
     Indication: PROPHYLAXIS
  4. PARACETAMOL [Concomitant]
     Active Substance: ACETAMINOPHEN
     Indication: PREMEDICATION
     Route: 065
  5. DARZALEX [Suspect]
     Active Substance: DARATUMUMAB
     Indication: AMYLOIDOSIS
     Dosage: ON DAYS 1, 8, 15, AND 22 FOR THE FIRST 2 CYCLES AND THEN EVERY OTHER WEEK FOR CYCLES 3 THROUGH 6.
     Route: 042
  6. METHYLPREDNISOLONE. [Concomitant]
     Active Substance: METHYLPREDNISOLONE
     Indication: PREMEDICATION
     Route: 065

REACTIONS (47)
  - Ruptured cerebral aneurysm [Unknown]
  - Skin infection [Unknown]
  - Constipation [Unknown]
  - Anaemia [Unknown]
  - Cardiac arrest [Unknown]
  - Lung adenocarcinoma [Unknown]
  - Angina pectoris [Unknown]
  - Bronchitis [Unknown]
  - Rhinitis [Unknown]
  - Asthenia [Unknown]
  - Vomiting [Unknown]
  - Pleural effusion [Unknown]
  - Hypertension [Unknown]
  - Pain [Unknown]
  - Blood creatinine increased [Unknown]
  - Renal failure [Unknown]
  - Neuropathy peripheral [Unknown]
  - Macroglossia [Unknown]
  - Leukopenia [Unknown]
  - Infusion related reaction [Unknown]
  - Inflammation [Unknown]
  - Chest pain [Unknown]
  - Colon cancer [Unknown]
  - Nausea [Unknown]
  - Abdominal pain [Unknown]
  - Cough [Unknown]
  - Tremor [Unknown]
  - Hyperkalaemia [Unknown]
  - Urinary tract infection [Unknown]
  - Headache [Unknown]
  - Vision blurred [Unknown]
  - Inner ear disorder [Unknown]
  - Pneumonia [Unknown]
  - Pyrexia [Unknown]
  - Orthostatic hypotension [Unknown]
  - Dyspnoea [Unknown]
  - Hypotension [Unknown]
  - Mental disorder [Unknown]
  - Skin disorder [Unknown]
  - Cardiac failure [Unknown]
  - Arrhythmia [Unknown]
  - Oedema [Unknown]
  - Chills [Unknown]
  - Diarrhoea [Unknown]
  - Rhinorrhoea [Unknown]
  - Bronchospasm [Unknown]
  - Fall [Unknown]
